FAERS Safety Report 24859039 (Version 1)
Quarter: 2025Q1

REPORT INFORMATION
  Report Type: Spontaneous
  Country: CN (occurrence: CN)
  Receive Date: 20250118
  Receipt Date: 20250118
  Transmission Date: 20250409
  Serious: Yes (Hospitalization, Disabling)
  Sender: ABBVIE
  Company Number: CN-PFIZER INC-PV202500005319

PATIENT
  Age: 40 Year
  Sex: Male

DRUGS (2)
  1. AVIBACTAM SODIUM [Suspect]
     Active Substance: AVIBACTAM SODIUM
     Indication: Hypertension
     Route: 041
     Dates: start: 20241224, end: 20250103
  2. AVIBACTAM SODIUM [Suspect]
     Active Substance: AVIBACTAM SODIUM
     Indication: Hypertension
     Route: 042

REACTIONS (2)
  - Myelosuppression [Recovered/Resolved]
  - White blood cell count decreased [Recovered/Resolved]

NARRATIVE: CASE EVENT DATE: 20241227
